FAERS Safety Report 6785693-6 (Version None)
Quarter: 2010Q2

REPORT INFORMATION
  Report Type: 
  Country: None (occurrence: None)
  Receive Date: 20100621
  Receipt Date: 20100621
  Transmission Date: 20101027
  Serious: Yes (Hospitalization)
  Sender: FDA-Public Use
  Company Number: None

PATIENT
  Age: 85 Year
  Sex: Male
  Weight: 72.9 kg

DRUGS (11)
  1. PLAVIX [Suspect]
     Indication: TRANSIENT ISCHAEMIC ATTACK
     Dosage: 75MG DAILY PO  CHRONIC
     Route: 048
  2. ASPIRIN [Suspect]
     Indication: TRANSIENT ISCHAEMIC ATTACK
     Dosage: 325MG MWF PO CHRONIC
     Route: 048
  3. PREDNISONE [Concomitant]
  4. TIMOLOL MALEATE [Concomitant]
  5. QUINAPRIL [Concomitant]
  6. NORVASC [Concomitant]
  7. LUMIGAN [Concomitant]
  8. LASIX [Concomitant]
  9. AMARYL [Concomitant]
  10. OMEPRAZOLE [Concomitant]
  11. METFORMIN HCL [Concomitant]

REACTIONS (1)
  - LARGE INTESTINAL HAEMORRHAGE [None]
